FAERS Safety Report 11318246 (Version 1)
Quarter: 2015Q3

REPORT INFORMATION
  Report Type: Report from Study
  Country: US (occurrence: US)
  Receive Date: 20150728
  Receipt Date: 20150728
  Transmission Date: 20151125
  Serious: No
  Sender: FDA-Public Use
  Company Number: PHEH2015US002799

PATIENT
  Age: 26 Year
  Sex: Male
  Weight: 102.4 kg

DRUGS (2)
  1. RITALIN [Concomitant]
     Active Substance: METHYLPHENIDATE HYDROCHLORIDE
     Indication: PRODUCT USED FOR UNKNOWN INDICATION
     Dosage: 5 MG, UNK
     Route: 065
  2. GILENYA [Suspect]
     Active Substance: FINGOLIMOD HYDROCHLORIDE
     Indication: MULTIPLE SCLEROSIS
     Dosage: 0.5 MG, QD
     Route: 048
     Dates: start: 20141210

REACTIONS (6)
  - Photophobia [Recovering/Resolving]
  - Disorientation [Recovering/Resolving]
  - Blood pressure increased [Unknown]
  - Back pain [Recovering/Resolving]
  - Eye pain [Recovering/Resolving]
  - Stress [Recovered/Resolved with Sequelae]

NARRATIVE: CASE EVENT DATE: 201501
